FAERS Safety Report 19661819 (Version 1)
Quarter: 2021Q3

REPORT INFORMATION
  Report Type: Spontaneous
  Country: FR (occurrence: FR)
  Receive Date: 20210805
  Receipt Date: 20210805
  Transmission Date: 20211014
  Serious: Yes (Hospitalization)
  Sender: FDA-Public Use
  Company Number: FR-ORGANON-O2107FRA002487

PATIENT
  Sex: Male

DRUGS (3)
  1. METHADONE [Suspect]
     Active Substance: METHADONE HYDROCHLORIDE
     Dosage: 85 MILLIGRAM, QD
     Route: 064
     Dates: start: 2021, end: 20210706
  2. VALIUM [Suspect]
     Active Substance: DIAZEPAM
     Dosage: 10 MG ? 0 ? 20 MG
     Route: 064
     Dates: start: 2021, end: 20210706
  3. MIRTAZAPINE. [Suspect]
     Active Substance: MIRTAZAPINE
     Dosage: 15 MG X 2
     Route: 064
     Dates: start: 2021, end: 20210706

REACTIONS (1)
  - Drug withdrawal syndrome neonatal [Recovered/Resolved]

NARRATIVE: CASE EVENT DATE: 20210706
